FAERS Safety Report 24054582 (Version 1)
Quarter: 2024Q3

REPORT INFORMATION
  Report Type: Spontaneous
  Country: CN (occurrence: CN)
  Receive Date: 20240705
  Receipt Date: 20240705
  Transmission Date: 20241017
  Serious: Yes (Hospitalization, Other)
  Sender: CHEPLAPHARM
  Company Number: CN-ROCHE-3252454

PATIENT
  Age: 48 Year
  Sex: Male
  Weight: 46 kg

DRUGS (5)
  1. CAPECITABINE [Suspect]
     Active Substance: CAPECITABINE
     Indication: Intestinal adenocarcinoma
     Dosage: 1000 MG, TABLET TWICE A DAY ?DAILY DOSE: 1000 MILLIGRAM
     Route: 048
     Dates: start: 20220802
  2. CAPECITABINE [Suspect]
     Active Substance: CAPECITABINE
     Indication: Intestinal adenocarcinoma
     Dosage: DAILY DOSE: 1500 MILLIGRAM
     Route: 048
     Dates: start: 20220808
  3. ATEZOLIZUMAB [Suspect]
     Active Substance: ATEZOLIZUMAB
     Indication: Intestinal adenocarcinoma
     Dosage: 1200 MG, INFUSION ONCE IN A 3 WEEKS
     Route: 042
     Dates: start: 20220802
  4. TIRAGOLUMAB [Suspect]
     Active Substance: TIRAGOLUMAB
     Indication: Intestinal adenocarcinoma
     Dosage: 600 MG, INFUSION EVERY 3 WEEKS
     Route: 042
     Dates: start: 20220802
  5. OXALIPLATIN [Suspect]
     Active Substance: OXALIPLATIN
     Indication: Intestinal adenocarcinoma
     Dosage: 187 MG, INFUSION ONCE IN A 3 WEEKS
     Route: 042
     Dates: start: 20220802

REACTIONS (2)
  - Pneumonia [Not Recovered/Not Resolved]
  - Pneumonitis [Unknown]

NARRATIVE: CASE EVENT DATE: 20221214
